FAERS Safety Report 23061375 (Version 3)
Quarter: 2024Q3

REPORT INFORMATION
  Report Type: Report from Study
  Country: DE (occurrence: DE)
  Receive Date: 20231013
  Receipt Date: 20240801
  Transmission Date: 20241017
  Serious: Yes (Other)
  Sender: JOHNSON AND JOHNSON
  Company Number: DE-JNJFOC-20231023954

PATIENT
  Age: 85 Year
  Sex: Female

DRUGS (4)
  1. DARATUMUMAB [Suspect]
     Active Substance: DARATUMUMAB
     Indication: Plasma cell myeloma
     Dosage: 5
     Route: 065
     Dates: start: 20230905, end: 20230905
  2. DARATUMUMAB [Suspect]
     Active Substance: DARATUMUMAB
     Dosage: 10
     Route: 065
     Dates: start: 20230912, end: 20230912
  3. DARATUMUMAB [Suspect]
     Active Substance: DARATUMUMAB
     Dosage: 15
     Route: 065
     Dates: start: 20230905, end: 20230905
  4. DARATUMUMAB [Suspect]
     Active Substance: DARATUMUMAB
     Dosage: 15
     Route: 065
     Dates: start: 20230912, end: 20230912

REACTIONS (1)
  - Leukopenia [Recovered/Resolved]

NARRATIVE: CASE EVENT DATE: 20230919
